FAERS Safety Report 5234049-6 (Version None)
Quarter: 2007Q1

REPORT INFORMATION
  Report Type: 
  Country: None (occurrence: None)
  Receive Date: 20070208
  Receipt Date: 20070206
  Transmission Date: 20070707
  Serious: Yes (Other)
  Sender: FDA-Public Use
  Company Number: US-ROXANE LABORATORIES, INC-2007-DE-00741GD

PATIENT

DRUGS (1)
  1. PARACETAMOL/CODEINE [Suspect]
     Indication: HEADACHE

REACTIONS (1)
  - HEADACHE [None]
